FAERS Safety Report 9360706 (Version 1)
Quarter: 2013Q2

REPORT INFORMATION
  Report Type: Spontaneous
  Country: US (occurrence: None)
  Receive Date: 20130620
  Receipt Date: 20130620
  Transmission Date: 20140414
  Serious: Yes (Life-Threatening)
  Sender: FDA-Public Use
  Company Number: None

PATIENT
  Age: 51 Year
  Sex: Female
  Weight: 64.86 kg

DRUGS (1)
  1. MACROBID [Suspect]
     Indication: ESCHERICHIA URINARY TRACT INFECTION
     Dosage: 2 PER DAY 5 DAYS PO
     Route: 048

REACTIONS (2)
  - Urticaria [None]
  - Dyspnoea [None]
